FAERS Safety Report 8314101-9 (Version None)
Quarter: 2012Q2

REPORT INFORMATION
  Report Type: 
  Country: None (occurrence: None)
  Receive Date: 20120426
  Receipt Date: 20120416
  Transmission Date: 20120825
  Serious: Yes (Other)
  Sender: FDA-Public Use
  Company Number: US-ALLERGAN-1205400US

PATIENT
  Age: 39 Year
  Sex: Female

DRUGS (5)
  1. BOTULINUM TOXIN TYPE A [Suspect]
     Indication: MIGRAINE
     Dosage: SEVEN INJECTIONS WITH UNKNOWN TOTAL UNITS
     Route: 030
     Dates: start: 20120412, end: 20120412
  2. EFFEXOR [Concomitant]
     Indication: PRODUCT USED FOR UNKNOWN INDICATION
     Dosage: 150 MG, QD
     Route: 048
  3. IBUPROFEN [Concomitant]
     Indication: PRODUCT USED FOR UNKNOWN INDICATION
     Dosage: UNK
     Route: 048
  4. TOPAMAX [Concomitant]
     Indication: PRODUCT USED FOR UNKNOWN INDICATION
     Dosage: 150 MG, QD
     Route: 048
  5. VICODIN [Concomitant]
     Indication: POSTOPERATIVE CARE
     Dosage: UNK
     Route: 048

REACTIONS (9)
  - PARAESTHESIA [None]
  - NAUSEA [None]
  - FALL [None]
  - SUICIDAL IDEATION [None]
  - HEADACHE [None]
  - VOMITING [None]
  - MUSCULOSKELETAL STIFFNESS [None]
  - RASH [None]
  - NECK PAIN [None]
